FAERS Safety Report 6167034-0 (Version None)
Quarter: 2009Q2

REPORT INFORMATION
  Report Type: 
  Country: None (occurrence: None)
  Receive Date: 20090424
  Receipt Date: 20090414
  Transmission Date: 20091009
  Serious: Yes (Hospitalization, Other)
  Sender: FDA-Public Use
  Company Number: US-PFIZER INC-2009197933

PATIENT
  Sex: Male

DRUGS (3)
  1. CHANTIX [Suspect]
     Indication: SMOKING CESSATION THERAPY
     Dosage: UNK
     Dates: start: 20071101
  2. RISPERDAL [Concomitant]
     Indication: MENTAL DISORDER
     Dosage: UNK
  3. CELEXA [Concomitant]
     Indication: MENTAL DISORDER
     Dosage: UNK

REACTIONS (7)
  - ABNORMAL BEHAVIOUR [None]
  - FEELING ABNORMAL [None]
  - ILL-DEFINED DISORDER [None]
  - MALAISE [None]
  - NAUSEA [None]
  - PERSONALITY CHANGE [None]
  - THINKING ABNORMAL [None]
